FAERS Safety Report 17574451 (Version 4)
Quarter: 2020Q4

REPORT INFORMATION
  Report Type: Report from Study
  Country: US (occurrence: US)
  Receive Date: 20200324
  Receipt Date: 20201116
  Transmission Date: 20210113
  Serious: Yes (Other)
  Sender: FDA-Public Use
  Company Number: US-ROCHE-2567375

PATIENT
  Age: 70 Year
  Sex: Male

DRUGS (6)
  1. BEVACIZUMAB. [Suspect]
     Active Substance: BEVACIZUMAB
     Indication: THYROID CANCER
     Route: 065
  2. PACLITAXEL. [Suspect]
     Active Substance: PACLITAXEL
     Indication: THYROID CANCER
     Route: 065
  3. ATEZOLIZUMAB. [Suspect]
     Active Substance: ATEZOLIZUMAB
     Indication: THYROID CANCER
     Route: 041
  4. COBIMETINIB. [Suspect]
     Active Substance: COBIMETINIB
     Indication: THYROID CANCER
     Route: 048
  5. VEMURAFENIB. [Suspect]
     Active Substance: VEMURAFENIB
     Indication: THYROID CANCER
     Route: 065
  6. NAB-PACLITAXEL [Suspect]
     Active Substance: PACLITAXEL
     Indication: THYROID CANCER
     Route: 065

REACTIONS (2)
  - Hyperplasia [Recovered/Resolved]
  - Papilloma [Recovered/Resolved]

NARRATIVE: CASE EVENT DATE: 20200303
